FAERS Safety Report 9258183 (Version 1)
Quarter: 2013Q2

REPORT INFORMATION
  Report Type: Spontaneous
  Country: FR (occurrence: None)
  Receive Date: 20130424
  Receipt Date: 20130424
  Transmission Date: 20140414
  Serious: Yes (Other)
  Sender: FDA-Public Use
  Company Number: FR-MACLEODS PHARMA-000085

PATIENT
  Age: 30 Year
  Sex: Male

DRUGS (1)
  1. PANTOPRAZOLE (PANTOPRAZOLE) [Suspect]
     Indication: GASTROOESOPHAGEAL REFLUX DISEASE

REACTIONS (3)
  - Cutaneous lupus erythematosus [None]
  - Neutropenia [None]
  - Rash erythematous [None]
